FAERS Safety Report 4955138-7 (Version None)
Quarter: 2006Q1

REPORT INFORMATION
  Report Type: 
  Country: None (occurrence: None)
  Receive Date: 20060328
  Receipt Date: 20060322
  Transmission Date: 20060701
  Serious: Yes (Other)
  Sender: FDA-Public Use
  Company Number: US-SOLVAY-00206000968

PATIENT
  Age: 614 Month
  Sex: Male
  Weight: 63.5 kg

DRUGS (4)
  1. KLONOPIN [Concomitant]
     Indication: SLEEP DISORDER
     Dosage: DAILY DOSE: .5 MILLIGRAM(S)
     Route: 048
  2. ANDROGEL [Suspect]
     Indication: BLOOD TESTOSTERONE DECREASED
     Dosage: DAILY DOSE: 5 GRAM(S)
     Route: 062
     Dates: start: 19990101, end: 20050901
  3. ANDROGEL [Suspect]
     Dosage: DAILY DOSE: 5 GRAM(S)
     Route: 062
     Dates: start: 20051001, end: 20051201
  4. AMBIEN CR [Concomitant]
     Indication: SLEEP DISORDER
     Dosage: DAILY DOSE: 12.5 MILLIGRAM(S)
     Route: 048

REACTIONS (2)
  - BLOOD TESTOSTERONE DECREASED [None]
  - SUICIDAL IDEATION [None]
